FAERS Safety Report 25724320 (Version 2)
Quarter: 2025Q4

REPORT INFORMATION
  Report Type: Spontaneous
  Country: EU (occurrence: EU)
  Receive Date: 20250826
  Receipt Date: 20251027
  Transmission Date: 20260117
  Serious: Yes (Other)
  Sender: AUROBINDO
  Company Number: EU-MLMSERVICE-20240930-PI213200-00044-1

PATIENT
  Age: 73 Year
  Sex: Female
  Weight: 49 kg

DRUGS (23)
  1. ZOLPIDEM TARTRATE [Suspect]
     Active Substance: ZOLPIDEM TARTRATE
     Indication: Insomnia
     Dosage: 10 MILLIGRAM, ONCE A DAY
     Route: 065
  2. ZOLPIDEM TARTRATE [Suspect]
     Active Substance: ZOLPIDEM TARTRATE
     Dosage: 5 MILLIGRAM, ONCE A DAY (5 MG, QD (DECREASE TO 5 MG FOR 4 WEEKS))
     Route: 065
  3. ZOLPIDEM TARTRATE [Suspect]
     Active Substance: ZOLPIDEM TARTRATE
     Dosage: 2.5 MILLIGRAM, ONCE A DAY (2.5 MG, QD (FROM WEEK 5 TO 8 WE RECOMMEND A DOSE OF 2.5 MG))
     Route: 065
  4. PAROXETINE [Interacting]
     Active Substance: PAROXETINE
     Indication: Depression
     Dosage: 20 MILLIGRAM, ONCE A DAY
     Route: 065
  5. PAROXETINE [Interacting]
     Active Substance: PAROXETINE
     Dosage: 10 MILLIGRAM, ONCE A DAY
     Route: 065
  6. TOLTERODINE [Interacting]
     Active Substance: TOLTERODINE
     Indication: Urinary incontinence
     Dosage: 4 MILLIGRAM, ONCE A DAY
     Route: 065
  7. TOLTERODINE [Interacting]
     Active Substance: TOLTERODINE
     Indication: Urinary incontinence
  8. ALPRAZOLAM [Suspect]
     Active Substance: ALPRAZOLAM
     Indication: Anxiety
     Dosage: 1 MILLIGRAM, 3 TIMES A DAY (1 MG, Q8H (1-1-1) (FROM 2 YEARS))
     Route: 065
  9. ALPRAZOLAM [Suspect]
     Active Substance: ALPRAZOLAM
     Dosage: 0.25 MILLIGRAM
     Route: 065
  10. ALPRAZOLAM [Suspect]
     Active Substance: ALPRAZOLAM
     Dosage: GRADUAL REDUCTION OF A QUARTER EVERY 4 WEEKS
     Route: 065
  11. METFORMIN [Suspect]
     Active Substance: METFORMIN HYDROCHLORIDE
     Indication: Type 2 diabetes mellitus
     Dosage: 850 MILLIGRAM, TWO TIMES A DAY (850 MG, BID (1-0-1) (FROM 6 YEARS))
     Route: 065
  12. ENALAPRIL [Suspect]
     Active Substance: ENALAPRIL
     Indication: Hypertension
     Dosage: 20 MILLIGRAM, ONCE A DAY (20 MG, QD (1-0-0) (FROM 11 YEARS))
     Route: 065
  13. ACETAMINOPHEN [Suspect]
     Active Substance: ACETAMINOPHEN
     Indication: Pain
     Dosage: 1 GRAM, 3 TIMES A DAY (1 G, TID (FROM 5 YEARS) (1-1-1) ON DEMAND)
     Route: 065
  14. BISOPROLOL [Suspect]
     Active Substance: BISOPROLOL
     Indication: Cardiac failure
     Dosage: 2.5 MILLIGRAM, ONCE A DAY (2.5 MG, QD (1-0-0) (FROM 10 YEARS))
     Route: 065
  15. BISOPROLOL [Suspect]
     Active Substance: BISOPROLOL
     Indication: Cardiac failure
  16. BUTYLSCOPOLAMINE BROMIDE [Suspect]
     Active Substance: BUTYLSCOPOLAMINE BROMIDE
     Indication: Pain
     Dosage: 10 MILLIGRAM, 3 TIMES A DAY
     Route: 065
  17. OMEPRAZOLE [Suspect]
     Active Substance: OMEPRAZOLE
     Indication: Gastric pH decreased
     Dosage: 20 MILLIGRAM, ONCE A DAY (20 MG, QD (1-0-0) (FROM 10 YEARS))
     Route: 065
  18. ATORVASTATIN [Suspect]
     Active Substance: ATORVASTATIN
     Indication: Hypercholesterolaemia
     Dosage: 40 MILLIGRAM, ONCE A DAY (40 MG, QD (0-0-1) (FROM 4 YEARS))
     Route: 065
  19. ASPIRIN [Suspect]
     Active Substance: ASPIRIN
     Indication: Cerebrovascular accident
     Dosage: 100 MILLIGRAM, ONCE A DAY (100 MG, QD (1-0-0) (FROM 10 YEARS))
     Route: 065
  20. AMITRIPTYLINE [Suspect]
     Active Substance: AMITRIPTYLINE
     Indication: Pain
     Dosage: 75 MILLIGRAM, ONCE A DAY (75 MG, QD (0-0-1) (FROM 2 YEARS))
     Route: 065
  21. SCOPOLAMINE [Suspect]
     Active Substance: SCOPOLAMINE
     Indication: Pain
     Dosage: UNK
     Route: 065
  22. BUTYLSCOPOLAMINE BROMIDE [Suspect]
     Active Substance: BUTYLSCOPOLAMINE BROMIDE
     Indication: Pain
     Dosage: 10 MILLIGRAM, 3 TIMES A DAY (10 MG (1-1-1), FROM 1 YEAR)
     Route: 065
  23. BUTYLSCOPOLAMINE [Concomitant]
     Active Substance: BUTYLSCOPOLAMINE
     Indication: Product used for unknown indication
     Dosage: 30 MILLIGRAM, ONCE A DAY
     Route: 065

REACTIONS (11)
  - Medication error [Unknown]
  - Haematoma [Unknown]
  - Anticholinergic effect [Recovered/Resolved]
  - Patient elopement [Recovered/Resolved]
  - Fall [Unknown]
  - Confusional state [Recovered/Resolved]
  - Dizziness [Recovered/Resolved]
  - Daydreaming [Recovered/Resolved]
  - Disturbance in attention [Recovered/Resolved]
  - Drug interaction [Recovered/Resolved]
  - Drug ineffective [Unknown]
